FAERS Safety Report 21519909 (Version 1)
Quarter: 2022Q4

REPORT INFORMATION
  Report Type: Spontaneous
  Country: CA (occurrence: CA)
  Receive Date: 20221028
  Receipt Date: 20221028
  Transmission Date: 20230112
  Serious: Yes (Other)
  Sender: FDA-Public Use
  Company Number: CA-TEVA-2022-CA-2819313

PATIENT
  Age: 21 Year
  Sex: Male

DRUGS (2)
  1. NAPROXEN [Suspect]
     Active Substance: NAPROXEN
     Indication: Myocarditis
     Dosage: THERAPY DURATION : 15.0 DAYS
     Route: 065
  2. PANTOPRAZOLE SODIUM [Suspect]
     Active Substance: PANTOPRAZOLE SODIUM
     Indication: Gastric pH decreased
     Dosage: THERAPY DURATION : 15.0 DAYS
     Route: 065

REACTIONS (1)
  - Pericarditis [Not Recovered/Not Resolved]
